FAERS Safety Report 8545599-9 (Version None)
Quarter: 2012Q3

REPORT INFORMATION
  Report Type: 
  Country: None (occurrence: None)
  Receive Date: 20120727
  Receipt Date: 20120718
  Transmission Date: 20120928
  Serious: Yes (Congenital Anomaly, Other)
  Sender: FDA-Public Use
  Company Number: RU-ASTRAZENECA-2012SE50922

PATIENT
  Age: 33 Year
  Sex: Female

DRUGS (10)
  1. DICYNONE [Concomitant]
     Dosage: UNK
  2. CLOTRIMAZOLE [Concomitant]
     Dosage: UNK
  3. MAGNELIS B6 [Concomitant]
     Dosage: UNK
  4. COMPLIVIT [Concomitant]
     Dosage: UNK
  5. ANGIOVIT [Concomitant]
     Dosage: UNK
  6. METOPROLOL SUCCINATE [Suspect]
     Route: 048
  7. PAPAVERINE HYDROCHLORIDE [Concomitant]
     Dosage: UNK
  8. MAGNESIUM SULFATE [Concomitant]
     Dosage: UNK
  9. DUPHASTON [Concomitant]
     Dosage: UNK
  10. FOLIC ACID [Concomitant]
     Dosage: UNK

REACTIONS (3)
  - UMBILICAL CORD THROMBOSIS [None]
  - MATERNAL EXPOSURE DURING PREGNANCY [None]
  - FOETAL DEATH [None]
